FAERS Safety Report 6418992-8 (Version None)
Quarter: 2009Q4

REPORT INFORMATION
  Report Type: 
  Country: None (occurrence: None)
  Receive Date: 20091028
  Receipt Date: 20091028
  Transmission Date: 20100525
  Serious: No
  Sender: FDA-Public Use
  Company Number: None

PATIENT
  Age: 56 Year

DRUGS (2)
  1. ENOXAPARIN SODIUM [Suspect]
     Dosage: 100 MG BID SQ
     Route: 058
     Dates: start: 20090904, end: 20090918
  2. WARFARIN SODIUM [Suspect]
     Dosage: 4 MG EVERY DAY PO
     Route: 048
     Dates: start: 20090904, end: 20090918

REACTIONS (3)
  - ABDOMINAL WALL HAEMATOMA [None]
  - ECCHYMOSIS [None]
  - INTERNATIONAL NORMALISED RATIO INCREASED [None]
